FAERS Safety Report 4448583-X (Version None)
Quarter: 2004Q3

REPORT INFORMATION
  Report Type: 
  Country: None (occurrence: None)
  Receive Date: 20040730
  Receipt Date: 20040107
  Transmission Date: 20050211
  Serious: Yes (Other)
  Sender: FDA-Public Use
  Company Number: 2004-01-0340

PATIENT
  Age: 47 Year
  Sex: Female
  Weight: 59.8748 kg

DRUGS (2)
  1. INTRON A [Suspect]
     Indication: MALIGNANT MELANOMA
     Dosage: 33 MU INTRAVENOUS
     Route: 042
     Dates: start: 20031229, end: 20040105
  2. INTRAVENOUS FLUIDS INJECTABLE SOLUTION [Concomitant]

REACTIONS (4)
  - ALANINE AMINOTRANSFERASE INCREASED [None]
  - ASPARTATE AMINOTRANSFERASE INCREASED [None]
  - BLOOD LACTATE DEHYDROGENASE INCREASED [None]
  - DIZZINESS [None]
